FAERS Safety Report 21634078 (Version 1)
Quarter: 2022Q4

REPORT INFORMATION
  Report Type: Report from Study
  Country: US (occurrence: US)
  Receive Date: 20221123
  Receipt Date: 20221123
  Transmission Date: 20230113
  Serious: Yes (Hospitalization)
  Sender: FDA-Public Use
  Company Number: US-PFIZER INC-PV202200108323

PATIENT
  Age: 70 Year
  Sex: Female
  Weight: 73.923 kg

DRUGS (6)
  1. TESSALON [Suspect]
     Active Substance: BENZONATATE
     Indication: Cough
     Dosage: UNK
  2. TYVASO [Suspect]
     Active Substance: TREPROSTINIL
     Indication: Pulmonary arterial hypertension
     Dosage: 48 UG, 4X/DAY
     Route: 045
     Dates: start: 20220811
  3. TYVASO [Suspect]
     Active Substance: TREPROSTINIL
     Dosage: UNK
     Route: 045
     Dates: start: 2022
  4. TYVASO [Suspect]
     Active Substance: TREPROSTINIL
     Dosage: UNK
     Route: 045
  5. CODEINE [Suspect]
     Active Substance: CODEINE
     Indication: Cough
     Dosage: UNK
  6. OFEV [Concomitant]
     Active Substance: NINTEDANIB
     Dosage: UNK

REACTIONS (9)
  - Cough [Unknown]
  - Therapy non-responder [Unknown]
  - Chest discomfort [Unknown]
  - Headache [Unknown]
  - Dyspnoea exertional [Unknown]
  - Chest pain [Unknown]
  - Fatigue [Unknown]
  - Oropharyngeal discomfort [Unknown]
  - Illness [Not Recovered/Not Resolved]

NARRATIVE: CASE EVENT DATE: 20220101
